FAERS Safety Report 5484073-3 (Version None)
Quarter: 2007Q4

REPORT INFORMATION
  Report Type: 
  Country: None (occurrence: None)
  Receive Date: 20071009
  Receipt Date: 20071009
  Transmission Date: 20080405
  Serious: Yes (Hospitalization)
  Sender: FDA-Public Use
  Company Number: None

PATIENT
  Sex: Female
  Weight: 74.09 kg

DRUGS (2)
  1. CISPLATIN [Suspect]
     Dosage: 108 MG
  2. ERBITUX [Suspect]
     Dosage: 1612 MG

REACTIONS (3)
  - ANAEMIA [None]
  - CONDITION AGGRAVATED [None]
  - VAGINAL HAEMORRHAGE [None]
